FAERS Safety Report 19194768 (Version 1)
Quarter: 2021Q2

REPORT INFORMATION
  Report Type: Spontaneous
  Country: US (occurrence: US)
  Receive Date: 20210428
  Receipt Date: 20210428
  Transmission Date: 20210717
  Serious: Yes (Other)
  Sender: FDA-Public Use
  Company Number: None

PATIENT
  Age: 57 Year
  Sex: Female
  Weight: 77.66 kg

DRUGS (1)
  1. BAMLANIVIMAB 700MG/ETESEVIMAB 1400MG [Suspect]
     Active Substance: BAMLANIVIMAB\ETESEVIMAB

REACTIONS (9)
  - Chest pain [None]
  - Dyspnoea [None]
  - Infusion related reaction [None]
  - Headache [None]
  - Oxygen saturation decreased [None]
  - Condition aggravated [None]
  - Anaphylactic reaction [None]
  - COVID-19 [None]
  - Cough [None]

NARRATIVE: CASE EVENT DATE: 20210417
